FAERS Safety Report 21811291 (Version 3)
Quarter: 2023Q1

REPORT INFORMATION
  Report Type: Spontaneous
  Country: US (occurrence: US)
  Receive Date: 20230103
  Receipt Date: 20230213
  Transmission Date: 20230418
  Serious: No
  Sender: FDA-Public Use
  Company Number: US-PFIZER INC-202201393514

PATIENT
  Age: 65 Year
  Sex: Female
  Weight: 100.7 kg

DRUGS (8)
  1. PAXLOVID [Suspect]
     Active Substance: NIRMATRELVIR\RITONAVIR
     Indication: COVID-19 treatment
     Dosage: 3 DF, 2X/DAY (OVAL SHAPED PINK AND WHITE TABLETS: 3 TABLETS TWICE DAILY IN MORNING AND AT NIGHT)
     Dates: start: 20221222
  2. PAXLOVID [Suspect]
     Active Substance: NIRMATRELVIR\RITONAVIR
     Dosage: UNK
  3. MELATONIN [Concomitant]
     Active Substance: MELATONIN
     Indication: Insomnia
     Dosage: 5 MG, DAILY (5MG AT NIGHT BEFORE BED)
     Dates: start: 202208
  4. OMEPRAZOLE [Concomitant]
     Active Substance: OMEPRAZOLE
     Indication: Gastrooesophageal reflux disease
     Dosage: 40 MG, DAILY (40MG EVERY NIGHT)
     Dates: start: 2017
  5. REQUIP [Concomitant]
     Active Substance: ROPINIROLE HYDROCHLORIDE
     Indication: Restless legs syndrome
     Dosage: 4 MG, 3X/DAY
  6. HYDROCODONE [Concomitant]
     Active Substance: HYDROCODONE
     Indication: Pain
     Dosage: 10/325MG 3 TIMES A DAY (AS REPORTED)
     Dates: start: 2012
  7. HYDROCODONE [Concomitant]
     Active Substance: HYDROCODONE
     Indication: Spinal deformity
  8. HYDROCODONE [Concomitant]
     Active Substance: HYDROCODONE
     Indication: Osteoarthritis

REACTIONS (4)
  - Drooling [Not Recovered/Not Resolved]
  - Dysgeusia [Not Recovered/Not Resolved]
  - Product taste abnormal [Unknown]
  - Diarrhoea [Not Recovered/Not Resolved]

NARRATIVE: CASE EVENT DATE: 20221222
